FAERS Safety Report 9014683 (Version 2)
Quarter: 2014Q1

REPORT INFORMATION
  Report Type: Spontaneous
  Country: US (occurrence: US)
  Receive Date: 20130115
  Receipt Date: 20140109
  Transmission Date: 20141002
  Serious: Yes (Disabling)
  Sender: FDA-Public Use
  Company Number: US-009507513-1301USA005931

PATIENT
  Sex: Male

DRUGS (2)
  1. PROPECIA [Suspect]
     Indication: ALOPECIA
     Dosage: 1 MG, QD
     Route: 048
     Dates: start: 1999, end: 201101
  2. FINASTERIDE [Suspect]
     Indication: ALOPECIA
     Dosage: 5 MG, UNK
     Route: 048
     Dates: start: 201101, end: 201201

REACTIONS (14)
  - Anxiety [Not Recovered/Not Resolved]
  - Sexual dysfunction [Not Recovered/Not Resolved]
  - Headache [Not Recovered/Not Resolved]
  - Nervous system disorder [Not Recovered/Not Resolved]
  - Disturbance in attention [Not Recovered/Not Resolved]
  - Migraine [Not Recovered/Not Resolved]
  - Genital hypoaesthesia [Unknown]
  - Fatigue [Not Recovered/Not Resolved]
  - Joint injury [Not Recovered/Not Resolved]
  - Wrong technique in drug usage process [Unknown]
  - Depression [Not Recovered/Not Resolved]
  - Erectile dysfunction [Unknown]
  - Semen volume decreased [Unknown]
  - Gynaecomastia [Unknown]
